FAERS Safety Report 11585201 (Version 1)
Quarter: 2015Q4

REPORT INFORMATION
  Report Type: Report from Study
  Country: US (occurrence: US)
  Receive Date: 20151001
  Receipt Date: 20151001
  Transmission Date: 20160304
  Serious: Yes (Hospitalization)
  Sender: FDA-Public Use
  Company Number: US-GILEAD-2015-0173296

PATIENT
  Age: 45 Year
  Sex: Male

DRUGS (10)
  1. AMBRISENTAN [Suspect]
     Active Substance: AMBRISENTAN
     Indication: DRUG ABUSE
  2. NORVIR [Concomitant]
     Active Substance: RITONAVIR
     Dosage: 100 UNK, UNK
  3. AMBRISENTAN [Suspect]
     Active Substance: AMBRISENTAN
     Indication: ACQUIRED IMMUNODEFICIENCY SYNDROME
     Dosage: 5 MG, QD
     Route: 065
  4. SILDENAFIL. [Concomitant]
     Active Substance: SILDENAFIL
     Dosage: 20 UNK, UNK
  5. PREZISTA [Concomitant]
     Active Substance: DARUNAVIR ETHANOLATE
     Dosage: 800 UNK, UNK
  6. TRUVADA [Suspect]
     Active Substance: EMTRICITABINE\TENOFOVIR DISOPROXIL FUMARATE
     Indication: PRODUCT USED FOR UNKNOWN INDICATION
     Dosage: 200 UNK, UNK
     Route: 065
  7. LASIX [Concomitant]
     Active Substance: FUROSEMIDE
     Dosage: 20 UNK, UNK
  8. MEPRON                             /00049601/ [Concomitant]
  9. DIFLUCAN [Concomitant]
     Active Substance: FLUCONAZOLE
     Dosage: 100 UNK, UNK
  10. AMBRISENTAN [Suspect]
     Active Substance: AMBRISENTAN
     Indication: PULMONARY HYPERTENSION
     Dosage: 10 MG, QD
     Route: 065
     Dates: start: 20150313

REACTIONS (1)
  - Arthralgia [Unknown]
